FAERS Safety Report 5412751-0 (Version None)
Quarter: 2007Q3

REPORT INFORMATION
  Report Type: 
  Country: None (occurrence: None)
  Receive Date: 20070809
  Receipt Date: 20070724
  Transmission Date: 20080115
  Serious: Yes (Congenital Anomaly)
  Sender: FDA-Public Use
  Company Number: 016846

PATIENT
  Sex: Female

DRUGS (2)
  1. METHOTREXATE [Suspect]
     Indication: DRUG EXPOSURE DURING PREGNANCY
     Dosage: 50 MG/M2, SINGLE, TRANSPLACENTAL
     Route: 064
  2. MISOPROSTOL [Suspect]
     Indication: DRUG EXPOSURE DURING PREGNANCY
     Dosage: 800 UG, SINGLE, TRANSPLACENTAL
     Route: 064

REACTIONS (16)
  - ABNORMAL PALMAR/PLANTAR CREASES [None]
  - CONGENITAL ANOMALY [None]
  - CONGENITAL BOWING OF LONG BONES [None]
  - CONGENITAL CHOROID PLEXUS CYST [None]
  - DEVELOPMENTAL DELAY [None]
  - DRUG EXPOSURE DURING PREGNANCY [None]
  - DYSMORPHISM [None]
  - FOETAL GROWTH RETARDATION [None]
  - INDUCED ABORTION FAILED [None]
  - LIMB DEFORMITY [None]
  - NUCLEAR MAGNETIC RESONANCE IMAGING BRAIN ABNORMAL [None]
  - PREMATURE BABY [None]
  - PUPILS UNEQUAL [None]
  - RIB HYPOPLASIA [None]
  - SMALL FOR DATES BABY [None]
  - WEIGHT GAIN POOR [None]
